FAERS Safety Report 6640148-4 (Version None)
Quarter: 2010Q1

REPORT INFORMATION
  Report Type: 
  Country: None (occurrence: None)
  Receive Date: 20100318
  Receipt Date: 20100316
  Transmission Date: 20100710
  Serious: Yes (Hospitalization)
  Sender: FDA-Public Use
  Company Number: IT-ROCHE-679637

PATIENT
  Sex: Female

DRUGS (3)
  1. VALIUM [Suspect]
     Indication: DRUG USE FOR UNKNOWN INDICATION
     Route: 048
     Dates: start: 20081030
  2. EN [Suspect]
     Indication: DRUG USE FOR UNKNOWN INDICATION
     Route: 048
     Dates: start: 20081030
  3. ASPIRIN [Concomitant]
     Indication: PARAESTHESIA
     Dates: start: 20090128, end: 20090128

REACTIONS (6)
  - ERYTHEMA [None]
  - HYPOTENSION [None]
  - NAUSEA [None]
  - PRURITUS [None]
  - TREMOR [None]
  - VOMITING [None]
